FAERS Safety Report 17014821 (Version 1)
Quarter: 2019Q4

REPORT INFORMATION
  Report Type: Spontaneous
  Country: US (occurrence: US)
  Receive Date: 20191002
  Receipt Date: 20191002
  Transmission Date: 20200122
  Serious: Yes (Death, Life-Threatening, Hospitalization, Other)
  Sender: FDA-Public Use
  Company Number: None

PATIENT
  Age: 77 Year
  Sex: Male
  Weight: 78.93 kg

DRUGS (19)
  1. NIVOLUMAB [Suspect]
     Active Substance: NIVOLUMAB
     Indication: UVEAL MELANOMA
  2. FLONASE [Concomitant]
     Active Substance: FLUTICASONE PROPIONATE
  3. METHYLPREDNISONE [Concomitant]
     Active Substance: METHYLPREDNISOLONE
  4. PRILOSEC [Concomitant]
     Active Substance: OMEPRAZOLE MAGNESIUM
  5. ATIVAN [Concomitant]
     Active Substance: LORAZEPAM
  6. NAPROXEN. [Concomitant]
     Active Substance: NAPROXEN
  7. ASPIRIN. [Concomitant]
     Active Substance: ASPIRIN
  8. MENS MULTIVITAMIN [Concomitant]
  9. MIRALAX [Concomitant]
     Active Substance: POLYETHYLENE GLYCOL 3350
  10. IPILIMUMAB [Suspect]
     Active Substance: IPILIMUMAB
     Indication: UVEAL MELANOMA
     Dosage: ?          OTHER FREQUENCY:Q3;?
     Route: 042
     Dates: start: 20190710
  11. FENOFIBRATE. [Concomitant]
     Active Substance: FENOFIBRATE
  12. BUSPAR [Concomitant]
     Active Substance: BUSPIRONE HYDROCHLORIDE
  13. ZOFRAN [Concomitant]
     Active Substance: ONDANSETRON HYDROCHLORIDE
  14. ALLOPURINOL. [Concomitant]
     Active Substance: ALLOPURINOL
  15. FLAGYL [Concomitant]
     Active Substance: METRONIDAZOLE\METRONIDAZOLE HYDROCHLORIDE
  16. METOPROLOL SUCCINATE (TOPROL XL) [Concomitant]
  17. LOSARTAN. [Concomitant]
     Active Substance: LOSARTAN
  18. LEVAQUIN [Concomitant]
     Active Substance: LEVOFLOXACIN
  19. TYLENOL EXTRA STRENGTH [Concomitant]
     Active Substance: ACETAMINOPHEN

REACTIONS (19)
  - Nausea [None]
  - Dysphagia [None]
  - Muscular weakness [None]
  - Fatigue [None]
  - Asthenia [None]
  - Urinary incontinence [None]
  - Hypotension [None]
  - Dropped head syndrome [None]
  - Gait disturbance [None]
  - Dyspnoea [None]
  - Necrotising myositis [None]
  - Abdominal pain upper [None]
  - Immune-mediated myositis [None]
  - Weight decreased [None]
  - Troponin increased [None]
  - Cough [None]
  - Pneumonia [None]
  - Rhabdomyolysis [None]
  - Respiratory failure [None]

NARRATIVE: CASE EVENT DATE: 20190806
